FAERS Safety Report 7461078-4 (Version None)
Quarter: 2011Q2

REPORT INFORMATION
  Report Type: 
  Country: None (occurrence: None)
  Receive Date: 20110505
  Receipt Date: 20110503
  Transmission Date: 20111010
  Serious: Yes (Other)
  Sender: FDA-Public Use
  Company Number: GB-MERCK-1105GBR00006

PATIENT
  Age: 64 Year
  Sex: Female
  Weight: 92 kg

DRUGS (5)
  1. GLICLAZIDE [Concomitant]
     Route: 065
  2. ROSUVASTATIN CALCIUM [Concomitant]
     Route: 065
  3. ASPIRIN [Concomitant]
     Route: 065
  4. ACETAMINOPHEN [Concomitant]
     Route: 065
  5. JANUVIA [Suspect]
     Indication: DIABETES MELLITUS
     Route: 048
     Dates: start: 20110408, end: 20110411

REACTIONS (2)
  - DYSPNOEA [None]
  - COUGH [None]
